FAERS Safety Report 6649208-5 (Version None)
Quarter: 2010Q1

REPORT INFORMATION
  Report Type: 
  Country: None (occurrence: None)
  Receive Date: 20100324
  Receipt Date: 20100317
  Transmission Date: 20100710
  Serious: Yes (Disabling, Other)
  Sender: FDA-Public Use
  Company Number: B0642509A

PATIENT
  Sex: Male

DRUGS (2)
  1. CLAVAMOX [Suspect]
     Indication: TONSILLITIS
     Dosage: 2000MG PER DAY
     Route: 048
     Dates: start: 20100110, end: 20100117
  2. OSELTAMIVIR PHOSPHATE [Concomitant]
     Indication: INFLUENZA
     Route: 048
     Dates: start: 20091201, end: 20091201

REACTIONS (2)
  - PENILE BLISTER [None]
  - PENILE OEDEMA [None]
